FAERS Safety Report 7079099-2 (Version None)
Quarter: 2010Q4

REPORT INFORMATION
  Report Type: 
  Country: None (occurrence: None)
  Receive Date: 20101102
  Receipt Date: 20101028
  Transmission Date: 20110411
  Serious: Yes (Hospitalization, Congenital Anomaly)
  Sender: FDA-Public Use
  Company Number: A0679377A

PATIENT
  Sex: Female

DRUGS (1)
  1. PAXIL [Suspect]
     Indication: BIPOLAR DISORDER
     Dates: start: 19980101, end: 20000101

REACTIONS (6)
  - CONGENITAL ANOMALY [None]
  - DROP ATTACKS [None]
  - DRUG EXPOSURE DURING PREGNANCY [None]
  - EPILEPSY [None]
  - PREMATURE BABY [None]
  - VENTRICULAR SEPTAL DEFECT [None]
